FAERS Safety Report 16540835 (Version 1)
Quarter: 2019Q3

REPORT INFORMATION
  Report Type: Spontaneous
  Country: JP (occurrence: US)
  Receive Date: 20190708
  Receipt Date: 20190708
  Transmission Date: 20191004
  Serious: No
  Sender: FDA-Public Use
  Company Number: JP-SA-2019SA179554

PATIENT
  Sex: Female

DRUGS (2)
  1. DUPILUMAB [Suspect]
     Active Substance: DUPILUMAB
     Indication: DERMATITIS ATOPIC
     Dosage: UNK MG
     Route: 058
  2. DUPILUMAB [Suspect]
     Active Substance: DUPILUMAB
     Dosage: DAILY DOSE: 150 MG
     Route: 058

REACTIONS (9)
  - Nasopharyngitis [Unknown]
  - Headache [Recovered/Resolved]
  - Erythema [Unknown]
  - Dry skin [Unknown]
  - Fatigue [Unknown]
  - Dermatitis [Recovered/Resolved]
  - Dyspnoea [Unknown]
  - Palpitations [Unknown]
  - Skin exfoliation [Unknown]
